FAERS Safety Report 10253165 (Version 1)
Quarter: 2014Q2

REPORT INFORMATION
  Report Type: Spontaneous
  Country: GB (occurrence: GB)
  Receive Date: 20140623
  Receipt Date: 20140623
  Transmission Date: 20141212
  Serious: Yes (Other)
  Sender: FDA-Public Use
  Company Number: GB-TEVA-488905ISR

PATIENT
  Age: 64 Year
  Sex: Male
  Weight: 63.7 kg

DRUGS (6)
  1. PREDNISOLONE [Suspect]
     Dates: start: 20140603
  2. AMOXICILLIN [Concomitant]
     Dates: start: 20140605
  3. DOXYCYCLINE [Concomitant]
     Dates: start: 20140603
  4. SPIRIVA [Concomitant]
     Dates: start: 20140210
  5. TAMSULOSIN HYDROCHLORIDE [Concomitant]
     Dates: start: 20140210
  6. VENTOLIN [Concomitant]
     Dates: start: 20140210

REACTIONS (1)
  - Factitious disorder [Recovered/Resolved]
